FAERS Safety Report 18751998 (Version 1)
Quarter: 2021Q1

REPORT INFORMATION
  Report Type: Spontaneous
  Country: US (occurrence: US)
  Receive Date: 20210118
  Receipt Date: 20210118
  Transmission Date: 20210419
  Serious: Yes (Other)
  Sender: FDA-Public Use
  Company Number: US-009507513-2101USA007691

PATIENT
  Age: 68 Year
  Sex: Female

DRUGS (1)
  1. BELSOMRA [Suspect]
     Active Substance: SUVOREXANT
     Indication: INSOMNIA
     Dosage: 1 TABLET ONCE DAILY
     Route: 048
     Dates: start: 202012, end: 202012

REACTIONS (4)
  - Middle insomnia [Recovering/Resolving]
  - Therapeutic product effect decreased [Recovering/Resolving]
  - Multiple sclerosis relapse [Recovering/Resolving]
  - Poor quality sleep [Recovering/Resolving]

NARRATIVE: CASE EVENT DATE: 202012
